FAERS Safety Report 23628162 (Version 1)
Quarter: 2024Q1

REPORT INFORMATION
  Report Type: Spontaneous
  Country: JP (occurrence: JP)
  Receive Date: 20240313
  Receipt Date: 20240313
  Transmission Date: 20240410
  Serious: Yes (Death, Other)
  Sender: FDA-Public Use
  Company Number: JP-MSD-M2024-09326

PATIENT
  Age: 7 Decade
  Sex: Male

DRUGS (3)
  1. SIVEXTRO [Suspect]
     Active Substance: TEDIZOLID PHOSPHATE
     Indication: Enterococcal infection
     Dosage: 200 MILLIGRAM, QD
     Route: 041
  2. CUBICIN [Suspect]
     Active Substance: DAPTOMYCIN
     Indication: Enterococcal infection
     Dosage: UNK
     Route: 041
  3. MINOCYCLINE HYDROCHLORIDE [Concomitant]
     Active Substance: MINOCYCLINE HYDROCHLORIDE
     Indication: Bacterial infection
     Dosage: UNK
     Route: 065

REACTIONS (3)
  - Death [Fatal]
  - Condition aggravated [Unknown]
  - Off label use [Unknown]
